FAERS Safety Report 23626199 (Version 1)
Quarter: 2024Q1

REPORT INFORMATION
  Report Type: Other
  Country: US (occurrence: US)
  Receive Date: 20240313
  Receipt Date: 20240313
  Transmission Date: 20240410
  Serious: Yes (Hospitalization, Other)
  Sender: FDA-Public Use
  Company Number: US-MLMSERVICE-20240223-4844617-1

PATIENT
  Age: 49 Year
  Sex: Female

DRUGS (1)
  1. NITROUS OXIDE [Suspect]
     Active Substance: NITROUS OXIDE
     Route: 055

REACTIONS (6)
  - Vitamin B12 deficiency [Recovering/Resolving]
  - Hypotension [Unknown]
  - Hallucination, visual [Recovering/Resolving]
  - Carboxyhaemoglobinaemia [Recovering/Resolving]
  - Haemolytic anaemia [Recovering/Resolving]
  - Encephalopathy [Recovering/Resolving]
